FAERS Safety Report 6390036-6 (Version None)
Quarter: 2009Q4

REPORT INFORMATION
  Report Type: 
  Country: None (occurrence: None)
  Receive Date: 20091006
  Receipt Date: 20090924
  Transmission Date: 20100525
  Serious: Yes (Other)
  Sender: FDA-Public Use
  Company Number: US-NOVOPROD-292118

PATIENT
  Sex: Female
  Weight: 81.633 kg

DRUGS (5)
  1. NOVOLIN N [Suspect]
     Indication: INSULIN-REQUIRING TYPE 2 DIABETES MELLITUS
     Dosage: UNK, UNK
     Route: 058
  2. NOVOLIN R [Suspect]
     Indication: INSULIN-REQUIRING TYPE 2 DIABETES MELLITUS
     Dosage: 25 IU, TID
     Route: 058
  3. AMLODIPINE [Concomitant]
     Indication: HYPERTENSION
     Dosage: 5 MG, QD
     Route: 048
  4. ZETIA [Concomitant]
     Indication: BLOOD CHOLESTEROL INCREASED
     Route: 048
  5. ASPIRIN [Concomitant]
     Indication: PROPHYLAXIS
     Dosage: UNK, UNK

REACTIONS (1)
  - RENAL FAILURE CHRONIC [None]
